FAERS Safety Report 8783173 (Version 1)
Quarter: 2012Q4

REPORT INFORMATION
  Report Type: Report from Study
  Country: US (occurrence: US)
  Receive Date: 20120913
  Receipt Date: 20120913
  Transmission Date: 20130627
  Serious: No
  Sender: FDA-Public Use
  Company Number: US-VERTEX PHARMACEUTICAL INC.-AE-2012-009688

PATIENT
  Age: 55 Year
  Sex: Female

DRUGS (7)
  1. INCIVEK [Suspect]
     Indication: HEPATITIS C
     Route: 048
  2. PEGASYS [Concomitant]
     Indication: HEPATITIS C
  3. RIBAPAK [Concomitant]
     Indication: HEPATITIS C
  4. DIOVAN [Concomitant]
  5. SPIRIVA CAP HANDIHLR [Concomitant]
  6. VITAMIN D [Concomitant]
  7. PROCRIT [Concomitant]

REACTIONS (6)
  - Depression [Unknown]
  - Constipation [Unknown]
  - Fatigue [Unknown]
  - Anaemia [Unknown]
  - Anal pruritus [Unknown]
  - Anorectal discomfort [Unknown]
